FAERS Safety Report 21207563 (Version 1)
Quarter: 2022Q3

REPORT INFORMATION
  Report Type: Spontaneous
  Country: US (occurrence: None)
  Receive Date: 20220811
  Receipt Date: 20220811
  Transmission Date: 20221027
  Serious: Yes (Hospitalization)
  Sender: FDA-Public Use
  Company Number: None

PATIENT
  Age: 81 Year
  Sex: Male

DRUGS (14)
  1. TACROLIMUS [Suspect]
     Active Substance: TACROLIMUS
  2. ACYCLOVIR [Concomitant]
     Active Substance: ACYCLOVIR
  3. BUMETANIDE TAB [Concomitant]
  4. CLOPIDOGREL [Concomitant]
     Active Substance: CLOPIDOGREL BISULFATE
  5. COLCHICINE TAB [Concomitant]
  6. ESCITALOPRAM [Concomitant]
     Active Substance: ESCITALOPRAM OXALATE
  7. FUROSEMIDE [Concomitant]
     Active Substance: FUROSEMIDE
  8. METOPROL TAR [Concomitant]
  9. OXYBUTYNIN TAB [Concomitant]
  10. SILDENAFIL [Concomitant]
     Active Substance: SILDENAFIL
  11. SILENAFIL [Concomitant]
  12. SIROLIMUS [Concomitant]
     Active Substance: SIROLIMUS
  13. SIROLIMUS [Concomitant]
     Active Substance: SIROLIMUS
  14. XIFAXAN TAB [Concomitant]

REACTIONS (1)
  - COVID-19 [None]

NARRATIVE: CASE EVENT DATE: 20220809
